FAERS Safety Report 8943231 (Version 1)
Quarter: 2012Q4

REPORT INFORMATION
  Report Type: Spontaneous
  Country: US (occurrence: None)
  Receive Date: 20121121
  Receipt Date: 20121121
  Transmission Date: 20130627
  Serious: Yes (Hospitalization)
  Sender: FDA-Public Use
  Company Number: 001405484A

PATIENT
  Age: 43 Year
  Sex: Female

DRUGS (2)
  1. PROACTIV CLEANSER [Suspect]
     Indication: ACNE
     Dosage: once daily dermal
     Dates: start: 20110909, end: 20120109
  2. PROACTIV REPAIRING TREATMENT [Suspect]
     Indication: ACNE
     Dosage: once daily dermal
     Dates: start: 20110909, end: 20120109

REACTIONS (2)
  - Swelling face [None]
  - Subcutaneous abscess [None]
